FAERS Safety Report 6097872-4 (Version None)
Quarter: 2009Q1

REPORT INFORMATION
  Report Type: 
  Country: None (occurrence: None)
  Receive Date: 20090225
  Receipt Date: 20090210
  Transmission Date: 20090719
  Serious: Yes (Other)
  Sender: FDA-Public Use
  Company Number: 2009AL000245

PATIENT
  Sex: Female

DRUGS (1)
  1. METFORMIN HYDROCHLORIDE [Suspect]
     Indication: GESTATIONAL DIABETES
     Dosage: 500 MG; BID; PO
     Route: 048
     Dates: start: 20080917, end: 20081113

REACTIONS (5)
  - DRUG EXPOSURE DURING PREGNANCY [None]
  - FOETAL GROWTH RETARDATION [None]
  - INTRA-UTERINE DEATH [None]
  - OESOPHAGEAL ATRESIA [None]
  - TRACHEO-OESOPHAGEAL FISTULA [None]
